FAERS Safety Report 6268815-5 (Version None)
Quarter: 2009Q3

REPORT INFORMATION
  Report Type: 
  Country: None (occurrence: None)
  Receive Date: 20090715
  Receipt Date: 20090707
  Transmission Date: 20100115
  Serious: Yes (Other)
  Sender: FDA-Public Use
  Company Number: DE-B.I. PHARMACEUTICALS,INC./RIDGEFIELD-2009-BP-06678YA

PATIENT
  Sex: Male
  Weight: 70 kg

DRUGS (2)
  1. OMNIC CAPSULES [Suspect]
     Indication: BENIGN PROSTATIC HYPERPLASIA
     Dosage: 0.4 MG
     Route: 048
     Dates: start: 20090508, end: 20090509
  2. BUDESONIDE (SYMBICORT DA) [Concomitant]
     Indication: ASTHMA

REACTIONS (3)
  - DIZZINESS POSTURAL [None]
  - HEADACHE [None]
  - TOOTHACHE [None]
